FAERS Safety Report 16289233 (Version 1)
Quarter: 2019Q2

REPORT INFORMATION
  Report Type: Spontaneous
  Country: JP (occurrence: JP)
  Receive Date: 20190509
  Receipt Date: 20190509
  Transmission Date: 20190711
  Serious: Yes (Other)
  Sender: FDA-Public Use
  Company Number: JP-ACCORD-126462

PATIENT
  Age: 7 Decade
  Sex: Male
  Weight: 52 kg

DRUGS (5)
  1. TEGAFUR/GIMERACIL/OTERACIL POTASSIUM [Suspect]
     Active Substance: GIMERACIL\OTERACIL\TEGAFUR
     Indication: GASTRIC CANCER STAGE IV
     Dosage: 120 MG/DAY, 3 WEEKS OF ADMINISTRATION, 2 WEEKS OF WASHOUT
  2. CISPLATIN. [Suspect]
     Active Substance: CISPLATIN
     Indication: GASTRIC CANCER STAGE IV
     Dosage: 3 WEEKS OF ADMINISTRATION, 2 WEEKS OF WASHOUT
  3. OXALIPLATIN. [Suspect]
     Active Substance: OXALIPLATIN
     Indication: GASTRIC CANCER STAGE IV
     Dosage: 2 WEEKS OF ADMINISTRATION, 1 WEEK OF WASHOUT
  4. CAPECITABINE. [Concomitant]
     Active Substance: CAPECITABINE
     Indication: GASTRIC CANCER STAGE IV
     Dosage: 3000 MG/DAY, 2 WEEKS OF ADMINISTRATION, 1 WEEK OF WASHOUT
  5. TRASTUZUMAB. [Concomitant]
     Active Substance: TRASTUZUMAB
     Indication: GASTRIC CANCER STAGE IV
     Dosage: 6 MG/KG THEREAFTER, 2 WEEKS OF ADMINISTRATION, 1 WEEK OF WASHOUT

REACTIONS (2)
  - Neuropathy peripheral [Unknown]
  - Bone marrow failure [Unknown]
